FAERS Safety Report 18013300 (Version 1)
Quarter: 2020Q3

REPORT INFORMATION
  Report Type: Spontaneous
  Country: PT (occurrence: PT)
  Receive Date: 20200713
  Receipt Date: 20200713
  Transmission Date: 20201103
  Serious: Yes (Other)
  Sender: FDA-Public Use
  Company Number: PT-ALIMERA SCIENCES LIMITED-PT-A16013-20-001789

PATIENT

DRUGS (2)
  1. ILUVIEN [Suspect]
     Active Substance: FLUOCINOLONE ACETONIDE
     Indication: PRODUCT USED FOR UNKNOWN INDICATION
     Dosage: 0.25 MICROGRAM, QD? UNKNOWN EYE
     Route: 031
     Dates: start: 20150928
  2. ILUVIEN [Suspect]
     Active Substance: FLUOCINOLONE ACETONIDE
     Dosage: 0.25 MICROGRAM, QD? UNKNOWN EYE
     Route: 031
     Dates: start: 20181119

REACTIONS (4)
  - Sclerotomy [Recovered/Resolved]
  - Intraocular pressure increased [Recovered/Resolved]
  - Retinal disorder [Unknown]
  - Visual field defect [Unknown]

NARRATIVE: CASE EVENT DATE: 20160603
